FAERS Safety Report 5726721-6 (Version None)
Quarter: 2008Q2

REPORT INFORMATION
  Report Type: 
  Country: None (occurrence: None)
  Receive Date: 20080502
  Receipt Date: 20080424
  Transmission Date: 20081010
  Serious: Yes (Other)
  Sender: FDA-Public Use
  Company Number: BE-BRISTOL-MYERS SQUIBB COMPANY-14171946

PATIENT
  Age: 86 Year
  Sex: Male

DRUGS (2)
  1. MITOMYCIN [Suspect]
     Indication: BLADDER NEOPLASM
     Route: 040
     Dates: start: 20070615, end: 20070705
  2. TAMSULOSIN HCL [Concomitant]
     Route: 048

REACTIONS (1)
  - DERMATITIS ALLERGIC [None]
